FAERS Safety Report 8193205-8 (Version None)
Quarter: 2012Q1

REPORT INFORMATION
  Report Type: 
  Country: None (occurrence: None)
  Receive Date: 20120223
  Receipt Date: 20101220
  Transmission Date: 20120608
  Serious: Yes (Disabling)
  Sender: FDA-Public Use
  Company Number: WAES 1006USA03711

PATIENT
  Age: 32 Year
  Sex: Male
  Weight: 75.2971 kg

DRUGS (1)
  1. PROPECIA [Suspect]
     Indication: ALOPECIA
     Dosage: 1 MG/DAILY/PO
     Route: 048
     Dates: start: 20090924, end: 20091005

REACTIONS (3)
  - EJACULATION FAILURE [None]
  - LIBIDO DECREASED [None]
  - ERECTILE DYSFUNCTION [None]
